FAERS Safety Report 12519354 (Version 1)
Quarter: 2016Q2

REPORT INFORMATION
  Report Type: Report from Study
  Country: US (occurrence: US)
  Receive Date: 20160630
  Receipt Date: 20160630
  Transmission Date: 20160815
  Serious: Yes (Hospitalization)
  Sender: FDA-Public Use
  Company Number: US-ABBVIE-16K-163-1659966-00

PATIENT
  Age: 24 Year
  Sex: Female

DRUGS (1)
  1. HUMIRA [Suspect]
     Active Substance: ADALIMUMAB
     Indication: PRODUCT USED FOR UNKNOWN INDICATION
     Route: 058
     Dates: end: 201604

REACTIONS (11)
  - Neoplasm malignant [Recovering/Resolving]
  - Erythema [Not Recovered/Not Resolved]
  - Colitis ulcerative [Unknown]
  - Haemoptysis [Recovering/Resolving]
  - Tuberculosis [Recovering/Resolving]
  - Bacterial infection [Recovering/Resolving]
  - Abasia [Unknown]
  - Pulmonary mass [Recovering/Resolving]
  - Blood iron decreased [Recovering/Resolving]
  - Phlebitis [Recovering/Resolving]
  - Fungal infection [Recovering/Resolving]

NARRATIVE: CASE EVENT DATE: 201604
